FAERS Safety Report 7929623-X (Version None)
Quarter: 2011Q4

REPORT INFORMATION
  Report Type: 
  Country: None (occurrence: None)
  Receive Date: 20111108
  Receipt Date: 20110513
  Transmission Date: 20120403
  Serious: Yes (Hospitalization)
  Sender: FDA-Public Use
  Company Number: PHHY2011US21132

PATIENT
  Age: 85 Year
  Sex: Female

DRUGS (1)
  1. ZOMETA [Suspect]
     Indication: OSTEITIS DEFORMANS
     Dosage: 4 MG, DAILY, INTRAVENOUS
     Route: 042
     Dates: start: 20110301, end: 20110301

REACTIONS (2)
  - HYPOCALCAEMIA [None]
  - HYPOAESTHESIA [None]
